FAERS Safety Report 23669190 (Version 1)
Quarter: 2024Q1

REPORT INFORMATION
  Report Type: Spontaneous
  Country: FR (occurrence: FR)
  Receive Date: 20240325
  Receipt Date: 20240325
  Transmission Date: 20240409
  Serious: Yes (Other)
  Sender: FDA-Public Use
  Company Number: None

PATIENT
  Age: 42 Year
  Sex: Female
  Weight: 63 kg

DRUGS (2)
  1. OLUMIANT [Suspect]
     Active Substance: BARICITINIB
     Indication: Alopecia areata
     Dosage: 4 MG, DAILY
     Route: 048
     Dates: start: 202303, end: 202402
  2. DESOGESTREL [Concomitant]
     Active Substance: DESOGESTREL
     Indication: Oral contraception
     Dosage: UNK UNK, UNKNOWN
     Route: 048
     Dates: start: 202303, end: 202402

REACTIONS (1)
  - Breast cancer [Not Recovered/Not Resolved]

NARRATIVE: CASE EVENT DATE: 20240101
